FAERS Safety Report 7179746-0 (Version None)
Quarter: 2010Q4

REPORT INFORMATION
  Report Type: 
  Country: None (occurrence: None)
  Receive Date: 20101221
  Receipt Date: 20101217
  Transmission Date: 20110411
  Serious: Yes (Other)
  Sender: FDA-Public Use
  Company Number: ES-ROCHE-748807

PATIENT
  Age: 57 Year
  Sex: Female

DRUGS (3)
  1. AVASTIN [Suspect]
     Indication: DIABETIC RETINOPATHY
     Route: 031
     Dates: start: 20100921, end: 20101119
  2. METFORMIN HCL [Concomitant]
     Route: 048
  3. INSULIN [Concomitant]

REACTIONS (1)
  - INTESTINAL PERFORATION [None]
